FAERS Safety Report 20097393 (Version 1)
Quarter: 2021Q4

REPORT INFORMATION
  Report Type: Spontaneous
  Country: US (occurrence: US)
  Receive Date: 20211122
  Receipt Date: 20211122
  Transmission Date: 20220303
  Serious: No
  Sender: FDA-Public Use
  Company Number: US-SA-SAC20211117000184

PATIENT
  Sex: Female

DRUGS (2)
  1. DUPIXENT [Suspect]
     Active Substance: DUPILUMAB
     Indication: Dermatitis atopic
     Dosage: 300 MG, QOW
     Route: 058
     Dates: start: 202106
  2. PFIZER-BIONTECH COVID-19 VACCINE [Concomitant]
     Active Substance: TOZINAMERAN

REACTIONS (7)
  - Conjunctivitis [Unknown]
  - Dry eye [Unknown]
  - Eye pain [Unknown]
  - Eye swelling [Unknown]
  - Eye discharge [Unknown]
  - Ocular hyperaemia [Unknown]
  - Eye oedema [Unknown]
